FAERS Safety Report 17514633 (Version 2)
Quarter: 2020Q1

REPORT INFORMATION
  Report Type: Spontaneous
  Country: AT (occurrence: AT)
  Receive Date: 20200309
  Receipt Date: 20200330
  Transmission Date: 20200409
  Serious: Yes (Other)
  Sender: FDA-Public Use
  Company Number: AT-009507513-1904AUT011511

PATIENT
  Age: 76 Year
  Sex: Female

DRUGS (4)
  1. POMALIDOMIDE [Suspect]
     Active Substance: POMALIDOMIDE
     Indication: HIGH-GRADE B-CELL LYMPHOMA
     Dosage: 4 MILLIGRAM, D1-21, Q28D
     Route: 048
  2. TEMOZOLOMIDE. [Suspect]
     Active Substance: TEMOZOLOMIDE
     Indication: OCULAR LYMPHOMA
     Dosage: 6 CYCLES, D1-5, Q28.
     Route: 048
  3. RITUXIMAB. [Suspect]
     Active Substance: RITUXIMAB
     Indication: HIGH-GRADE B-CELL LYMPHOMA
     Dosage: 1400 MG Q4W
     Route: 058
  4. DEXAMETHASONE. [Concomitant]
     Active Substance: DEXAMETHASONE
     Indication: HIGH-GRADE B-CELL LYMPHOMA
     Dosage: 20 MILLIGRAM, QW
     Route: 048

REACTIONS (4)
  - Hypogammaglobulinaemia [Recovered/Resolved]
  - Adrenal insufficiency [Recovered/Resolved]
  - Neurotoxicity [Recovered/Resolved]
  - Product use in unapproved indication [Unknown]
